FAERS Safety Report 16123156 (Version 1)
Quarter: 2019Q1

REPORT INFORMATION
  Report Type: Spontaneous
  Country: US (occurrence: US)
  Receive Date: 20190222
  Receipt Date: 20190222
  Transmission Date: 20190418
  Serious: Yes (Other)
  Sender: FDA-Public Use
  Company Number: None

PATIENT
  Age: 44 Year
  Sex: Male
  Weight: 77.56 kg

DRUGS (1)
  1. CHANTIX [Suspect]
     Active Substance: VARENICLINE TARTRATE
     Indication: SMOKING CESSATION THERAPY
     Route: 048
     Dates: start: 20181004, end: 20181129

REACTIONS (5)
  - Mood swings [None]
  - Depression [None]
  - Suicidal ideation [None]
  - Anxiety [None]
  - Formication [None]

NARRATIVE: CASE EVENT DATE: 20181129
